FAERS Safety Report 23655467 (Version 1)
Quarter: 2024Q1

REPORT INFORMATION
  Report Type: Spontaneous
  Country: US (occurrence: US)
  Receive Date: 20240320
  Receipt Date: 20240320
  Transmission Date: 20240409
  Serious: No
  Sender: FDA-Public Use
  Company Number: US-AMGEN-USASP2024054571

PATIENT
  Age: 16 Year
  Sex: Female

DRUGS (13)
  1. INFLIXIMAB [Suspect]
     Active Substance: INFLIXIMAB
     Indication: Paradoxical drug reaction
     Dosage: 500 MILLIGRAM ((APPROXIMATELY 7.5 MG/KG/ DOSE)
     Route: 065
  2. ISONIAZID [Concomitant]
     Active Substance: ISONIAZID
     Indication: Latent tuberculosis
     Dosage: 300 MILLIGRAM
     Route: 048
  3. ISONIAZID [Concomitant]
     Active Substance: ISONIAZID
     Indication: Pulmonary tuberculosis
  4. ISONIAZID [Concomitant]
     Active Substance: ISONIAZID
     Indication: Meningitis tuberculous
  5. DEXAMETHASONE [Concomitant]
     Active Substance: DEXAMETHASONE
     Indication: Pulmonary tuberculosis
     Dosage: 10 MILLIGRAM (0.13 MG/KG/DAY)
     Route: 065
  6. DEXAMETHASONE [Concomitant]
     Active Substance: DEXAMETHASONE
     Indication: Meningitis tuberculous
     Dosage: 0.4 MILLIGRAM/KILOGRAM, QD
     Route: 065
  7. DEXAMETHASONE [Concomitant]
     Active Substance: DEXAMETHASONE
     Dosage: 0.3 MILLIGRAM/KILOGRAM, QD
     Route: 065
  8. LEVOFLOXACIN [Concomitant]
     Active Substance: LEVOFLOXACIN
     Indication: Pulmonary tuberculosis
     Dosage: 750 MILLIGRAM, QD
     Route: 042
  9. LEVOFLOXACIN [Concomitant]
     Active Substance: LEVOFLOXACIN
     Indication: Meningitis tuberculous
  10. LINEZOLID [Concomitant]
     Active Substance: LINEZOLID
     Indication: Pulmonary tuberculosis
     Dosage: 600 MILLIGRAM, QD
     Route: 042
  11. LINEZOLID [Concomitant]
     Active Substance: LINEZOLID
     Indication: Meningitis tuberculous
  12. RIFAMPIN [Concomitant]
     Active Substance: RIFAMPIN
     Indication: Pulmonary tuberculosis
     Dosage: 600 MILLIGRAM
     Route: 065
  13. RIFAMPIN [Concomitant]
     Active Substance: RIFAMPIN
     Indication: Meningitis tuberculous
     Dosage: 20 MILLIGRAM/KILOGRAM, QD
     Route: 042

REACTIONS (2)
  - Drug effective for unapproved indication [Unknown]
  - Off label use [Unknown]
